FAERS Safety Report 4970405-9 (Version None)
Quarter: 2006Q2

REPORT INFORMATION
  Report Type: 
  Country: None (occurrence: None)
  Receive Date: 20060412
  Receipt Date: 20060324
  Transmission Date: 20061013
  Serious: Yes (Hospitalization)
  Sender: FDA-Public Use
  Company Number: JP-JPN-A200601037

PATIENT
  Age: 55 Year
  Sex: Male
  Weight: 79 kg

DRUGS (2)
  1. ROSIGLITAZONE MALEATE [Suspect]
     Indication: DIABETES MELLITUS NON-INSULIN-DEPENDENT
     Dosage: 4MG PER DAY
     Route: 048
     Dates: start: 20060117, end: 20060323
  2. BASEN [Concomitant]
     Indication: DIABETES MELLITUS NON-INSULIN-DEPENDENT
     Dosage: .2MG THREE TIMES PER DAY
     Route: 048
     Dates: start: 20051014, end: 20060323

REACTIONS (2)
  - GASTROINTESTINAL PAIN [None]
  - INTESTINAL OBSTRUCTION [None]
